FAERS Safety Report 23427676 (Version 2)
Quarter: 2024Q1

REPORT INFORMATION
  Report Type: Spontaneous
  Country: US (occurrence: US)
  Receive Date: 20240122
  Receipt Date: 20240122
  Transmission Date: 20240410
  Serious: Yes (Hospitalization, Other)
  Sender: FDA-Public Use
  Company Number: US-GILEAD-2024-0658709

PATIENT
  Age: 17 Year
  Sex: Female
  Weight: 75.2 kg

DRUGS (6)
  1. YESCARTA [Suspect]
     Active Substance: AXICABTAGENE CILOLEUCEL
     Indication: Diffuse large B-cell lymphoma
     Dosage: 68 ML
     Route: 042
     Dates: start: 20231030, end: 20231030
  2. FLUDARABINE [Concomitant]
     Active Substance: FLUDARABINE PHOSPHATE
     Indication: Lymphodepletion
     Dosage: UNK
     Dates: start: 20231025, end: 20231027
  3. CYCLOPHOSPHAMIDE [Concomitant]
     Active Substance: CYCLOPHOSPHAMIDE
     Indication: Lymphodepletion
     Dosage: UNK
     Dates: start: 20231025, end: 20231027
  4. ZARXIO [Concomitant]
     Active Substance: FILGRASTIM-SNDZ
  5. NPLATE [Concomitant]
     Active Substance: ROMIPLOSTIM
  6. EPO [ERYTHROPOIETIN] [Concomitant]

REACTIONS (19)
  - Brain oedema [Unknown]
  - Paraplegia [Unknown]
  - Peripheral paralysis [Not Recovered/Not Resolved]
  - Myelopathy [Unknown]
  - Small intestinal obstruction [Recovered/Resolved]
  - Proteinuria [Unknown]
  - Abdominal mass [Not Recovered/Not Resolved]
  - Cytomegalovirus viraemia [Unknown]
  - Fungaemia [Unknown]
  - Bacteraemia [Unknown]
  - Pancytopenia [Not Recovered/Not Resolved]
  - Disease progression [Not Recovered/Not Resolved]
  - Immune effector cell-associated neurotoxicity syndrome [Unknown]
  - Neurotoxicity [Unknown]
  - Seizure [Unknown]
  - Febrile neutropenia [Unknown]
  - Acute kidney injury [Unknown]
  - Cytokine release syndrome [Unknown]
  - Off label use [Recovered/Resolved]

NARRATIVE: CASE EVENT DATE: 20230101
